FAERS Safety Report 11424605 (Version 2)
Quarter: 2015Q3

REPORT INFORMATION
  Report Type: Spontaneous
  Country: US (occurrence: US)
  Receive Date: 20150827
  Receipt Date: 20150909
  Transmission Date: 20151125
  Serious: Yes (Other)
  Sender: FDA-Public Use
  Company Number: US-PERRIGO-15US008688

PATIENT
  Age: 65 Year
  Sex: Female
  Weight: 65.76 kg

DRUGS (1)
  1. RANITIDINE HYDROCHLORIDE 150 MG 852 [Suspect]
     Active Substance: RANITIDINE HYDROCHLORIDE
     Indication: DYSPEPSIA
     Dosage: 150 MG, QD AT BEDTIME WHEN NEEDED
     Route: 048
     Dates: start: 2014, end: 20150803

REACTIONS (3)
  - Rash [Recovered/Resolved]
  - Dyspnoea [Recovered/Resolved]
  - Urticaria [Recovered/Resolved]

NARRATIVE: CASE EVENT DATE: 20150720
